FAERS Safety Report 9361173 (Version 1)
Quarter: 2013Q2

REPORT INFORMATION
  Report Type: Spontaneous
  Country: CA (occurrence: CA)
  Receive Date: 20130621
  Receipt Date: 20130621
  Transmission Date: 20140414
  Serious: No
  Sender: FDA-Public Use
  Company Number: CA-JNJFOC-20130610333

PATIENT
  Sex: Male

DRUGS (2)
  1. STELARA [Suspect]
     Indication: PRODUCT USED FOR UNKNOWN INDICATION
     Route: 058
  2. ISONIAZID [Suspect]
     Indication: TUBERCULOSIS
     Route: 065

REACTIONS (1)
  - Liver function test abnormal [Unknown]
